FAERS Safety Report 9783299 (Version 1)
Quarter: 2013Q4

REPORT INFORMATION
  Report Type: Spontaneous
  Country: US (occurrence: None)
  Receive Date: 20131223
  Receipt Date: 20131223
  Transmission Date: 20140711
  Serious: Yes (Death, Other)
  Sender: FDA-Public Use
  Company Number: 2013US0514

PATIENT
  Age: 78 Year
  Sex: Male

DRUGS (1)
  1. KINERET [Suspect]
     Indication: SCHNITZLER^S SYNDROME
     Dosage: 100 MG, 1 IN 1 D, SUBCUTANEOUS
     Route: 058
     Dates: start: 201205

REACTIONS (3)
  - Hiatus hernia [None]
  - Cardiac arrest [None]
  - Respiratory arrest [None]
